FAERS Safety Report 6314878-8 (Version None)
Quarter: 2009Q3

REPORT INFORMATION
  Report Type: 
  Country: None (occurrence: None)
  Receive Date: 20090819
  Receipt Date: 20090807
  Transmission Date: 20100115
  Serious: Yes (Hospitalization, Other)
  Sender: FDA-Public Use
  Company Number: US-ELI_LILLY_AND_COMPANY-US200905002604

PATIENT
  Sex: Female

DRUGS (2)
  1. CYMBALTA [Suspect]
     Indication: FIBROMYALGIA
     Dosage: 60 MG, DAILY (1/D)
     Dates: start: 20090101, end: 20090401
  2. VITAMINS [Concomitant]

REACTIONS (8)
  - ABORTION SPONTANEOUS [None]
  - ANAEMIA [None]
  - ASTHENIA [None]
  - BACK PAIN [None]
  - DRUG EXPOSURE DURING PREGNANCY [None]
  - MUSCLE SPASMS [None]
  - POSTPARTUM HAEMORRHAGE [None]
  - PREMATURE LABOUR [None]
